FAERS Safety Report 19498158 (Version 2)
Quarter: 2023Q1

REPORT INFORMATION
  Report Type: Report from Study
  Country: US (occurrence: US)
  Receive Date: 20210706
  Receipt Date: 20230324
  Transmission Date: 20230418
  Serious: Yes (Other)
  Sender: FDA-Public Use
  Company Number: US-SA-2017SA130862

PATIENT
  Age: 46 Year
  Sex: Male
  Weight: 97.06 kg

DRUGS (4)
  1. IMIGLUCERASE [Suspect]
     Active Substance: IMIGLUCERASE
     Indication: Gaucher^s disease
     Dosage: 5600 IU, QOW
     Route: 041
     Dates: start: 2012
  2. IMIGLUCERASE [Suspect]
     Active Substance: IMIGLUCERASE
     Dosage: 5600 U, QOW
     Route: 041
     Dates: start: 20130817
  3. IMIGLUCERASE [Suspect]
     Active Substance: IMIGLUCERASE
     Dosage: 5600U, QOW
     Route: 041
     Dates: start: 20160713
  4. CERDELGA [Concomitant]
     Active Substance: ELIGLUSTAT

REACTIONS (6)
  - Parkinson^s disease [Not Recovered/Not Resolved]
  - Gait disturbance [Not Recovered/Not Resolved]
  - Sleep disorder [Not Recovered/Not Resolved]
  - Tremor [Not Recovered/Not Resolved]
  - Depression [Not Recovered/Not Resolved]
  - Fall [Not Recovered/Not Resolved]

NARRATIVE: CASE EVENT DATE: 20190301
